FAERS Safety Report 21304392 (Version 1)
Quarter: 2022Q3

REPORT INFORMATION
  Report Type: Spontaneous
  Country: US (occurrence: None)
  Receive Date: 20220907
  Receipt Date: 20220907
  Transmission Date: 20221026
  Serious: No
  Sender: FDA-Public Use
  Company Number: US-ARIS GLOBAL-202108-1322

PATIENT
  Sex: Female

DRUGS (14)
  1. OXERVATE [Suspect]
     Active Substance: CENEGERMIN-BKBJ
     Indication: Neurotrophic keratopathy
     Route: 047
     Dates: start: 20210730
  2. VITAMIN B COMPLEX [Concomitant]
     Active Substance: CYANOCOBALAMIN\DEXPANTHENOL\NIACINAMIDE\PYRIDOXINE HYDROCHLORIDE\RIBOFLAVIN 5^-PHOSPHATE SODIUM\THIA
  3. PROLIA [Concomitant]
     Active Substance: DENOSUMAB
     Dosage: 60 MG/ML SYRINGE
  4. TYLENOL [Concomitant]
     Active Substance: ACETAMINOPHEN
  5. PROCHLORPERAZINE MALEATE [Concomitant]
     Active Substance: PROCHLORPERAZINE MALEATE
  6. REFRESH CLASSIC [Concomitant]
     Active Substance: POLYVINYL ALCOHOL\POVIDONE
  7. VITAMIN D3 [Concomitant]
     Active Substance: CHOLECALCIFEROL
  8. MAGNESIUM OXIDE [Concomitant]
     Active Substance: MAGNESIUM OXIDE
  9. FLUOROMETHOLONE [Concomitant]
     Active Substance: FLUOROMETHOLONE
     Dosage: DROPS SUSPENSION
  10. VITAMINS [Concomitant]
     Active Substance: VITAMINS
  11. ERYTHROMYCIN [Concomitant]
     Active Substance: ERYTHROMYCIN
  12. ATENOLOL [Concomitant]
     Active Substance: ATENOLOL
  13. ARMOUR THYROID [Concomitant]
     Active Substance: THYROID, PORCINE
  14. BLOOD SERUM [Concomitant]

REACTIONS (2)
  - Wrong technique in product usage process [Unknown]
  - Product administration error [Unknown]
